FAERS Safety Report 9007921 (Version 1)
Quarter: 2013Q1

REPORT INFORMATION
  Report Type: Spontaneous
  Country: US (occurrence: US)
  Receive Date: 20130111
  Receipt Date: 20130111
  Transmission Date: 20140127
  Serious: No
  Sender: FDA-Public Use
  Company Number: US-PFIZER INC-2013009394

PATIENT
  Age: 65 Year
  Sex: Male

DRUGS (1)
  1. INLYTA [Suspect]
     Dosage: 5 MG, Q12H
     Route: 048
     Dates: start: 20121013

REACTIONS (1)
  - Blood pressure increased [Recovered/Resolved]
